FAERS Safety Report 11746889 (Version 1)
Quarter: 2015Q4

REPORT INFORMATION
  Report Type: Report from Study
  Country: AR (occurrence: AR)
  Receive Date: 20151117
  Receipt Date: 20151117
  Transmission Date: 20160304
  Serious: Yes (Other)
  Sender: FDA-Public Use
  Company Number: AR-EMD SERONO-8053677

PATIENT
  Age: 7 Year
  Sex: Female

DRUGS (3)
  1. SAIZEN [Suspect]
     Active Substance: SOMATROPIN
     Indication: TURNER^S SYNDROME
     Dates: start: 20140801
  2. SAIZEN [Suspect]
     Active Substance: SOMATROPIN
     Dosage: DISCONTINUED
  3. SAIZEN [Suspect]
     Active Substance: SOMATROPIN
     Dosage: RESUMED

REACTIONS (5)
  - Dissociation [Unknown]
  - Hormone level abnormal [Unknown]
  - Vein rupture [Unknown]
  - Syncope [Unknown]
  - Skin striae [Unknown]

NARRATIVE: CASE EVENT DATE: 201510
